FAERS Safety Report 20974631 (Version 1)
Quarter: 2022Q2

REPORT INFORMATION
  Report Type: Spontaneous
  Country: US (occurrence: US)
  Receive Date: 20220617
  Receipt Date: 20220617
  Transmission Date: 20220721
  Serious: No
  Sender: FDA-Public Use
  Company Number: US-ELI_LILLY_AND_COMPANY-US202206007701

PATIENT
  Age: 15 Year
  Sex: Female

DRUGS (5)
  1. EMGALITY [Suspect]
     Active Substance: GALCANEZUMAB-GNLM
     Indication: Migraine
     Dosage: 120 MG, OTHER (ONE PEN OF LOADING DOSE)
     Route: 058
     Dates: start: 20220601
  2. EMGALITY [Suspect]
     Active Substance: GALCANEZUMAB-GNLM
     Indication: Migraine
     Dosage: 120 MG, OTHER (ONE PEN OF LOADING DOSE)
     Route: 058
     Dates: start: 20220601
  3. EMGALITY [Suspect]
     Active Substance: GALCANEZUMAB-GNLM
     Dosage: 120 MG, OTHER (SECOND PEN OF LOADING DOSE)
     Route: 058
     Dates: start: 20220601
  4. EMGALITY [Suspect]
     Active Substance: GALCANEZUMAB-GNLM
     Dosage: 120 MG, OTHER (SECOND PEN OF LOADING DOSE)
     Route: 058
     Dates: start: 20220601
  5. EMGALITY [Suspect]
     Active Substance: GALCANEZUMAB-GNLM
     Dosage: 120 MG, OTHER (SECOND PEN OF LOADING DOSE)
     Route: 058
     Dates: start: 20220601

REACTIONS (4)
  - Nightmare [Unknown]
  - Nausea [Unknown]
  - Depression [Unknown]
  - Off label use [Unknown]

NARRATIVE: CASE EVENT DATE: 20220601
